FAERS Safety Report 11527869 (Version 1)
Quarter: 2015Q3

REPORT INFORMATION
  Report Type: Spontaneous
  Country: US (occurrence: US)
  Receive Date: 20150920
  Receipt Date: 20150920
  Transmission Date: 20151125
  Serious: No
  Sender: FDA-Public Use
  Company Number: US-ASTRAZENECA-2015SE79431

PATIENT
  Sex: Female
  Weight: 88.9 kg

DRUGS (3)
  1. NOVOLOG [Concomitant]
     Active Substance: INSULIN ASPART
  2. LEVEMIR [Concomitant]
     Active Substance: INSULIN DETEMIR
  3. BYDUREON [Suspect]
     Active Substance: EXENATIDE
     Route: 058

REACTIONS (5)
  - Urinary tract infection [Unknown]
  - Gastrooesophageal reflux disease [Unknown]
  - Product quality issue [Unknown]
  - Underdose [Unknown]
  - Intentional device misuse [Unknown]
